FAERS Safety Report 24966406 (Version 1)
Quarter: 2025Q1

REPORT INFORMATION
  Report Type: Report from Study
  Country: IN (occurrence: IN)
  Receive Date: 20250213
  Receipt Date: 20250213
  Transmission Date: 20250409
  Serious: Yes (Hospitalization)
  Sender: ASTELLAS
  Company Number: IN-ASTELLAS-2025-AER-008358

PATIENT
  Age: 62 Year
  Sex: Female

DRUGS (2)
  1. GILTERITINIB [Suspect]
     Active Substance: GILTERITINIB
     Indication: Acute myeloid leukaemia
     Route: 048
     Dates: start: 20250119, end: 20250202
  2. PICASA [Concomitant]
     Indication: Neoplasm malignant
     Route: 065

REACTIONS (3)
  - White blood cell count decreased [Unknown]
  - Inappropriate schedule of product administration [Unknown]
  - Underdose [Unknown]

NARRATIVE: CASE EVENT DATE: 20250119
